FAERS Safety Report 26028289 (Version 2)
Quarter: 2025Q4

REPORT INFORMATION
  Report Type: Spontaneous
  Country: US (occurrence: US)
  Receive Date: 20251111
  Receipt Date: 20251125
  Transmission Date: 20260117
  Serious: No
  Sender: OTSUKA
  Company Number: US-OTSUKA-2025_006198

PATIENT
  Sex: Male

DRUGS (1)
  1. ABILIFY ASIMTUFII [Suspect]
     Active Substance: ARIPIPRAZOLE
     Indication: Product used for unknown indication
     Dosage: UNK
     Route: 065

REACTIONS (4)
  - Metabolic disorder [Unknown]
  - Adverse drug reaction [Unknown]
  - Aggression [Unknown]
  - Drug ineffective [Unknown]
